FAERS Safety Report 10688475 (Version 2)
Quarter: 2015Q1

REPORT INFORMATION
  Report Type: Spontaneous
  Country: US (occurrence: US)
  Receive Date: 20150102
  Receipt Date: 20150303
  Transmission Date: 20150720
  Serious: No
  Sender: FDA-Public Use
  Company Number: US-GLAXOSMITHKLINE-US2014GSK044948

PATIENT
  Age: 62 Year
  Sex: Female

DRUGS (7)
  1. THYROID MEDICATION [Concomitant]
     Active Substance: UNSPECIFIED INGREDIENT
  2. UNKNOWN MUSCLE RELAXER [Concomitant]
     Active Substance: UNSPECIFIED INGREDIENT
  3. UNKNOWN SLEEPING MEDICATION [Concomitant]
  4. UNKNOWN HEART MEDICATION [Concomitant]
     Active Substance: UNSPECIFIED INGREDIENT
  5. PROAIR HFA [Concomitant]
     Active Substance: ALBUTEROL SULFATE
  6. UNKNOWN PAIN MEDICATION [Concomitant]
     Active Substance: UNSPECIFIED INGREDIENT
  7. BREO ELLIPTA [Suspect]
     Active Substance: FLUTICASONE FUROATE\VILANTEROL TRIFENATATE
     Indication: CHRONIC OBSTRUCTIVE PULMONARY DISEASE
     Dosage: 1 PUFF(S), QD
     Route: 048
     Dates: start: 201404

REACTIONS (6)
  - Wheezing [Not Recovered/Not Resolved]
  - Throat irritation [Not Recovered/Not Resolved]
  - Productive cough [Not Recovered/Not Resolved]
  - Productive cough [Unknown]
  - Dysgeusia [Not Recovered/Not Resolved]
  - Drug dose omission [Unknown]
